FAERS Safety Report 9853144 (Version 2)
Quarter: 2014Q1

REPORT INFORMATION
  Report Type: Spontaneous
  Country: IT (occurrence: IT)
  Receive Date: 20140129
  Receipt Date: 20140327
  Transmission Date: 20141002
  Serious: Yes (Other)
  Sender: FDA-Public Use
  Company Number: IT-TEVA-457895ISR

PATIENT
  Age: 59 Year
  Sex: Male
  Weight: 77 kg

DRUGS (5)
  1. IRINOTECAN HYDROCHLORIDE TRIHYDRATE [Suspect]
     Indication: CHEMOTHERAPY
     Dosage: 320 MG CYCLICAL
     Route: 042
     Dates: start: 20121223, end: 20130401
  2. FLUOROURACIL [Suspect]
     Indication: CHEMOTHERAPY
     Dosage: 710 MG CYCLICAL
     Route: 040
     Dates: start: 20121223, end: 20130401
  3. FLUOROURACIL [Suspect]
     Indication: CHEMOTHERAPY
     Dosage: 4320 ML CYCLICAL
     Route: 041
     Dates: start: 20121223, end: 20130401
  4. ERBITUX - MERCK KGAA [Suspect]
     Indication: COLON CANCER METASTATIC
     Dosage: 900 MG CYCLICAL
     Route: 042
     Dates: start: 20121223, end: 20130401
  5. LEVOFOLINIC ACID [Concomitant]
     Indication: CHEMOTHERAPY
     Dosage: 360 MG
     Route: 042
     Dates: start: 20121223, end: 20130401

REACTIONS (1)
  - Atrial fibrillation [Unknown]
